FAERS Safety Report 25157450 (Version 1)
Quarter: 2025Q2

REPORT INFORMATION
  Report Type: Spontaneous
  Country: US (occurrence: US)
  Receive Date: 20250403
  Receipt Date: 20250403
  Transmission Date: 20250716
  Serious: Yes (Hospitalization, Other)
  Sender: PHARMACEUTICAL ASSOC
  Company Number: US-PAIPHARMA-2025-US-016733

PATIENT
  Age: 58 Year
  Sex: Male

DRUGS (1)
  1. SULFAMETHOXAZOLE\TRIMETHOPRIM [Suspect]
     Active Substance: SULFAMETHOXAZOLE\TRIMETHOPRIM
     Indication: Urinary tract infection

REACTIONS (1)
  - Myoclonus [Recovered/Resolved]
